FAERS Safety Report 25605944 (Version 1)
Quarter: 2025Q3

REPORT INFORMATION
  Report Type: Spontaneous
  Country: US (occurrence: None)
  Receive Date: 20250722
  Receipt Date: 20250722
  Transmission Date: 20251021
  Serious: Yes (Hospitalization)
  Sender: FDA-CTU
  Company Number: None

PATIENT
  Age: 50 Year
  Sex: Male

DRUGS (5)
  1. TACROLIMUS [Suspect]
     Active Substance: TACROLIMUS
     Indication: Renal transplant
     Dosage: 2 MG BID ORAL ?
     Route: 048
     Dates: start: 201801
  2. TACROLIMUS [Suspect]
     Active Substance: TACROLIMUS
     Indication: Pancreas transplant
  3. MYCOPHENOLIC ACID [Suspect]
     Active Substance: MYCOPHENOLIC ACID
     Indication: Renal transplant
     Dosage: 360 MG BID ORAL ?
     Route: 048
     Dates: start: 201801
  4. MYCOPHENOLIC ACID [Suspect]
     Active Substance: MYCOPHENOLIC ACID
     Indication: Pancreas transplant
  5. PREDNISONE [Suspect]
     Active Substance: PREDNISONE

REACTIONS (3)
  - Pancreas transplant rejection [None]
  - Kidney transplant rejection [None]
  - Herpes zoster [None]

NARRATIVE: CASE EVENT DATE: 20250707
